FAERS Safety Report 5463783-8 (Version None)
Quarter: 2007Q3

REPORT INFORMATION
  Report Type: 
  Country: None (occurrence: None)
  Receive Date: 20070919
  Receipt Date: 20070905
  Transmission Date: 20080115
  Serious: Yes (Hospitalization)
  Sender: FDA-Public Use
  Company Number: 152129USA

PATIENT
  Age: 62 Year
  Sex: Male

DRUGS (8)
  1. FLUOROURACIL [Suspect]
     Indication: METASTATIC GASTRIC CANCER
     Dosage: CYCLE 1, DAY 1-5 EVERY 28 DAYS (1780 MG), INTRAVENOUS (NOT OTHERWISE SPECIFIED)
     Route: 042
     Dates: start: 20070111, end: 20070115
  2. CISPLATIN [Suspect]
     Indication: METASTATIC GASTRIC CANCER
     Dosage: CYCLE 1 (178 MG, 1 IN 28 D), INTRAVENOUS (NOT OTHERWISE SPECIFIED)
     Route: 042
     Dates: start: 20070111, end: 20070111
  3. APREPITANT [Concomitant]
  4. LORAZEPAM [Concomitant]
  5. ONDANSETRON [Concomitant]
  6. PROCHLORPERAZINE EDISYLATE [Concomitant]
  7. HYDROCODONE BITARTRATE [Concomitant]
  8. ONDANSETRON [Concomitant]

REACTIONS (26)
  - ANAEMIA [None]
  - ASTHENIA [None]
  - ATELECTASIS [None]
  - BETA HAEMOLYTIC STREPTOCOCCAL INFECTION [None]
  - BILIARY TRACT DISORDER [None]
  - DEPRESSION [None]
  - DIARRHOEA [None]
  - DILATATION INTRAHEPATIC DUCT ACQUIRED [None]
  - EROSIVE OESOPHAGITIS [None]
  - FEBRILE NEUTROPENIA [None]
  - FUNGUS SPUTUM TEST POSITIVE [None]
  - GASTROINTESTINAL OBSTRUCTION [None]
  - HYPERBILIRUBINAEMIA [None]
  - HYPERGLYCAEMIA [None]
  - HYPONATRAEMIA [None]
  - JAUNDICE CHOLESTATIC [None]
  - LOBAR PNEUMONIA [None]
  - METABOLIC ACIDOSIS [None]
  - METASTASES TO LIVER [None]
  - METASTATIC GASTRIC CANCER [None]
  - MUCOSAL INFLAMMATION [None]
  - NAUSEA [None]
  - OEDEMA PERIPHERAL [None]
  - PLEURAL EFFUSION [None]
  - RENAL FAILURE [None]
  - STOMACH MASS [None]
